FAERS Safety Report 22081933 (Version 8)
Quarter: 2023Q4

REPORT INFORMATION
  Report Type: Spontaneous
  Country: CA (occurrence: CA)
  Receive Date: 20230310
  Receipt Date: 20231103
  Transmission Date: 20240109
  Serious: Yes (Other)
  Sender: FDA-Public Use
  Company Number: CA-CELLTRION INC.-2023CA004812

PATIENT

DRUGS (6)
  1. INFLECTRA [Suspect]
     Active Substance: INFLIXIMAB-DYYB
     Indication: Colitis ulcerative
     Dosage: 5 MG/KG, EVERY 8 WEEKS, PATIENT RECEIVED FIRST 2 DOSES IN HOSPITAL
     Route: 042
     Dates: start: 20230118, end: 20230201
  2. INFLECTRA [Suspect]
     Active Substance: INFLIXIMAB-DYYB
     Dosage: 5 MG/KG, EVERY 8 WEEKS, PATIENT RECEIVED FIRST 2 DOSES IN HOSPITAL
     Route: 042
     Dates: start: 20230201
  3. INFLECTRA [Suspect]
     Active Substance: INFLIXIMAB-DYYB
     Dosage: 385 MG, AFTER 8 WEEKS (5 MG/KG, INDUCTION W6 AND THEN MAINTENANCE Q8 WEEKS)
     Route: 042
     Dates: start: 20230509
  4. INFLECTRA [Suspect]
     Active Substance: INFLIXIMAB-DYYB
     Dosage: 380 MG, AFTER 8 WEEKS
     Route: 042
     Dates: start: 20230704
  5. INFLECTRA [Suspect]
     Active Substance: INFLIXIMAB-DYYB
     Dosage: 380 MG, AFTER 8 WEEKS
     Route: 042
     Dates: start: 20230829
  6. INFLECTRA [Suspect]
     Active Substance: INFLIXIMAB-DYYB
     Dosage: 370 MG (5MG/KG), 8 WEEKS
     Route: 042
     Dates: start: 20231024

REACTIONS (9)
  - Neoplasm malignant [Unknown]
  - Off label use [Unknown]
  - Condition aggravated [Not Recovered/Not Resolved]
  - Pruritus [Recovered/Resolved]
  - Rash [Recovered/Resolved]
  - Back pain [Recovered/Resolved]
  - Muscle spasms [Recovered/Resolved]
  - Pruritus [Recovered/Resolved]
  - Arthralgia [Unknown]

NARRATIVE: CASE EVENT DATE: 20230509
